FAERS Safety Report 8581010-X (Version None)
Quarter: 2012Q3

REPORT INFORMATION
  Report Type: 
  Country: None (occurrence: None)
  Receive Date: 20120809
  Receipt Date: 20120807
  Transmission Date: 20120928
  Serious: No
  Sender: FDA-Public Use
  Company Number: US-PFIZER INC-2012193147

PATIENT
  Age: 43 Year
  Sex: Female
  Weight: 83.9 kg

DRUGS (12)
  1. NEURONTIN [Concomitant]
     Indication: NEURALGIA
     Dosage: UNK
  2. CITALOPRAM [Concomitant]
     Indication: DEPRESSION
     Dosage: UNK
  3. BACLOFEN [Concomitant]
     Indication: MYALGIA
     Dosage: UNK
  4. MORPHINE SULFATE [Concomitant]
     Indication: PAIN
     Dosage: UNK
  5. DOXEPIN [Concomitant]
     Indication: SLEEP DISORDER
     Dosage: UNK
  6. CHANTIX [Suspect]
     Dosage: 0.5 MG, 1X/DAY
     Route: 048
     Dates: start: 20120724, end: 20120101
  7. VYTORIN [Concomitant]
     Dosage: UNK
  8. CHANTIX [Suspect]
     Indication: SMOKING CESSATION THERAPY
     Dosage: UNK
     Route: 048
  9. CHANTIX [Suspect]
     Dosage: 1 MG, 2X/DAY
     Route: 048
     Dates: start: 20120101
  10. XANAX [Concomitant]
     Indication: ANXIETY
     Dosage: UNK
     Route: 048
  11. VICODIN [Concomitant]
     Indication: PAIN
     Dosage: UNK
     Route: 048
  12. KLOR-CON [Concomitant]
     Dosage: UNK

REACTIONS (1)
  - ABNORMAL DREAMS [None]
